FAERS Safety Report 11081961 (Version 1)
Quarter: 2015Q2

REPORT INFORMATION
  Report Type: Spontaneous
  Country: GR (occurrence: None)
  Receive Date: 20150429
  Receipt Date: 20150429
  Transmission Date: 20150821
  Serious: Yes (Other)
  Sender: FDA-Public Use
  Company Number: COR_00068_2014

PATIENT
  Age: 32 Year
  Sex: Male

DRUGS (3)
  1. CARBOPLATIN. [Suspect]
     Active Substance: CARBOPLATIN
     Indication: GERM CELL CANCER
     Dosage: AUC = 6/DAY ON DAYS -6, -5, -4, -3?
  2. THIOTEPA (THIOTEPA) [Suspect]
     Active Substance: THIOTEPA
     Indication: GERM CELL CANCER
     Dosage: 160 MG/M2/DAY ON DAYS -6, -5, -4?
  3. ETOPOSIDE. [Suspect]
     Active Substance: ETOPOSIDE
     Indication: GERM CELL CANCER
     Dosage: 400 MG/M2/DAY ON DAYS -6, -5, -4, -3?

REACTIONS (4)
  - Febrile neutropenia [None]
  - Mucosal inflammation [None]
  - Diarrhoea [None]
  - Infection [None]
